FAERS Safety Report 21376851 (Version 1)
Quarter: 2022Q3

REPORT INFORMATION
  Report Type: Spontaneous
  Country: US (occurrence: US)
  Receive Date: 20220926
  Receipt Date: 20220926
  Transmission Date: 20221026
  Serious: No
  Sender: FDA-Public Use
  Company Number: US-BRISTOL-MYERS SQUIBB COMPANY-2022-111657

PATIENT
  Age: 65 Year
  Sex: Female
  Weight: 69.85 kg

DRUGS (9)
  1. ORENCIA [Suspect]
     Active Substance: ABATACEPT
     Indication: Psoriatic arthropathy
     Dosage: DOSE : 125MG;     FREQ : ONCE WEEKLY
     Route: 058
     Dates: start: 20220418
  2. LISINOPRIL [Concomitant]
     Active Substance: LISINOPRIL
     Indication: Product used for unknown indication
     Route: 065
  3. OMEPRAZOLE [Concomitant]
     Active Substance: OMEPRAZOLE
     Indication: Product used for unknown indication
     Route: 065
  4. TRIAMTERENE [Concomitant]
     Active Substance: TRIAMTERENE
     Indication: Product used for unknown indication
     Route: 065
  5. MONTELUKAST [Concomitant]
     Active Substance: MONTELUKAST SODIUM
     Indication: Product used for unknown indication
     Route: 065
  6. PRAVASTATIN [Concomitant]
     Active Substance: PRAVASTATIN
     Indication: Product used for unknown indication
     Route: 065
  7. CETIRIZINE HYDROCHLORIDE [Concomitant]
     Active Substance: CETIRIZINE HYDROCHLORIDE
     Indication: Product used for unknown indication
     Route: 065
  8. OZEMPIC [Concomitant]
     Active Substance: SEMAGLUTIDE
     Indication: Product used for unknown indication
     Route: 058
  9. COVID-19 VACCINE [Concomitant]
     Indication: COVID-19 immunisation
     Route: 065

REACTIONS (1)
  - Intentional product use issue [Unknown]
